FAERS Safety Report 5572881-X (Version None)
Quarter: 2007Q4

REPORT INFORMATION
  Report Type: 
  Country: None (occurrence: None)
  Receive Date: 20071223
  Receipt Date: 20071218
  Transmission Date: 20080405
  Serious: Yes (Other)
  Sender: FDA-Public Use
  Company Number: PHNU2007DE02130

PATIENT
  Sex: Female
  Weight: 68 kg

DRUGS (1)
  1. ZOMETA [Suspect]
     Indication: MULTIPLE MYELOMA
     Dosage: 4 MG, QMO
     Dates: start: 20050501, end: 20070601

REACTIONS (7)
  - FISTULA [None]
  - IMPAIRED HEALING [None]
  - JAW OPERATION [None]
  - PAIN IN JAW [None]
  - PRIMARY SEQUESTRUM [None]
  - SECRETION DISCHARGE [None]
  - TOOTH EXTRACTION [None]
